FAERS Safety Report 16796268 (Version 1)
Quarter: 2019Q3

REPORT INFORMATION
  Report Type: Spontaneous
  Country: US (occurrence: US)
  Receive Date: 20190911
  Receipt Date: 20190911
  Transmission Date: 20191005
  Serious: No
  Sender: FDA-Public Use
  Company Number: US-BAYER-2019-164463

PATIENT
  Age: 72 Year
  Sex: Male

DRUGS (1)
  1. STIVARGA [Suspect]
     Active Substance: REGORAFENIB
     Indication: RECTAL CANCER
     Dosage: DAILY DOSE 160 MG (21 DAYS)
     Dates: start: 20190430

REACTIONS (5)
  - Weight decreased [None]
  - Fatigue [None]
  - Dysphonia [None]
  - Diarrhoea [None]
  - Pain in extremity [None]
